FAERS Safety Report 9356701 (Version 3)
Quarter: 2014Q1

REPORT INFORMATION
  Report Type: Spontaneous
  Country: US (occurrence: US)
  Receive Date: 20130619
  Receipt Date: 20140304
  Transmission Date: 20141002
  Serious: Yes (Hospitalization)
  Sender: FDA-Public Use
  Company Number: US-B.I. PHARMACEUTICALS,INC./RIDGEFIELD-2013-BI-17204BP

PATIENT
  Age: 65 Year
  Sex: Female
  Weight: 95.25 kg

DRUGS (8)
  1. PRADAXA [Suspect]
     Indication: ATRIAL FIBRILLATION
     Dosage: 300 MG
     Route: 048
     Dates: start: 20120319, end: 20120401
  2. ALBUTEROL [Concomitant]
     Dosage: 720 MCG
     Route: 055
  3. ASPIRIN [Concomitant]
     Dosage: 81 MG
     Route: 048
  4. BENZONATATE [Concomitant]
     Dosage: 300 MG
     Route: 048
  5. EZETIMIBE [Concomitant]
     Dosage: 10 MG
     Route: 048
  6. LORAZEPAM [Concomitant]
     Dosage: 0.5 MG
     Route: 048
  7. ZOLPIDEM [Concomitant]
     Route: 048
  8. ACETAMINOPHEN/OXYCODONE [Concomitant]
     Route: 048

REACTIONS (4)
  - Upper gastrointestinal haemorrhage [Recovered/Resolved]
  - Haemorrhagic anaemia [Unknown]
  - Hypotension [Unknown]
  - Epistaxis [Unknown]
